FAERS Safety Report 9164761 (Version 1)
Quarter: 2013Q1

REPORT INFORMATION
  Report Type: Spontaneous
  Country: DK (occurrence: None)
  Receive Date: 20130226
  Receipt Date: 20130226
  Transmission Date: 20140127
  Serious: Yes (Other)
  Sender: FDA-Public Use
  Company Number: 2013MA001248

PATIENT
  Age: 26 Year
  Sex: Female

DRUGS (1)
  1. FLUOXETINE ORAL SOLUTION USP, 20MG/5ML (ALPHARMA) (FLUOXETINE) [Suspect]

REACTIONS (6)
  - Drug withdrawal headache [None]
  - Crying [None]
  - Dysarthria [None]
  - Feeling abnormal [None]
  - Panic reaction [None]
  - Drug withdrawal syndrome [None]
